FAERS Safety Report 6147955-5 (Version None)
Quarter: 2009Q2

REPORT INFORMATION
  Report Type: 
  Country: None (occurrence: None)
  Receive Date: 20090408
  Receipt Date: 20090407
  Transmission Date: 20091009
  Serious: Yes (Hospitalization)
  Sender: FDA-Public Use
  Company Number: A0777284A

PATIENT
  Age: 48 Year
  Sex: Female

DRUGS (1)
  1. ALLI [Suspect]
     Route: 048

REACTIONS (6)
  - ESCHERICHIA INFECTION [None]
  - FATIGUE [None]
  - FREQUENT BOWEL MOVEMENTS [None]
  - HAEMATOCHEZIA [None]
  - LARGE INTESTINE PERFORATION [None]
  - TREATMENT NONCOMPLIANCE [None]
